FAERS Safety Report 7898070-1 (Version None)
Quarter: 2011Q4

REPORT INFORMATION
  Report Type: 
  Country: None (occurrence: None)
  Receive Date: 20111107
  Receipt Date: 20111031
  Transmission Date: 20120403
  Serious: Yes (Other)
  Sender: FDA-Public Use
  Company Number: BR-PFIZER INC-2011265976

PATIENT
  Age: 28 Year
  Sex: Female
  Weight: 54 kg

DRUGS (3)
  1. NORDETTE-21 [Suspect]
     Indication: CONTRACEPTIVE CAP
     Dosage: [LEVONORGESTREL 0.15MG] / [ETHINYL ESTRADIOL 0.03MG] (ONE TABLET) DAILY
     Route: 048
     Dates: start: 20110301
  2. VITAMIN B COMPLEX CAP [Concomitant]
     Indication: ASTHENIA
     Dosage: UNK
     Dates: end: 20111001
  3. AZITROMICINA [Concomitant]
     Indication: SINUSITIS
     Dosage: UNK
     Dates: end: 20110801

REACTIONS (8)
  - ASTHENIA [None]
  - SYNCOPE [None]
  - ABDOMINAL DISTENSION [None]
  - DIZZINESS [None]
  - FORMICATION [None]
  - URINARY TRACT INFECTION [None]
  - GOITRE [None]
  - ACNE [None]
